FAERS Safety Report 23851564 (Version 1)
Quarter: 2024Q2

REPORT INFORMATION
  Report Type: Spontaneous
  Country: US (occurrence: US)
  Receive Date: 20240514
  Receipt Date: 20240514
  Transmission Date: 20240716
  Serious: Yes (Other)
  Sender: FDA-Public Use
  Company Number: US-JNJFOC-20240521823

PATIENT
  Age: 24 Year
  Sex: Female
  Weight: 25.424 kg

DRUGS (26)
  1. IMODIUM [Suspect]
     Active Substance: LOPERAMIDE HYDROCHLORIDE
     Indication: Product used for unknown indication
     Dosage: ONCE OR TWICE
     Route: 065
  2. DAYBUE [Suspect]
     Active Substance: TROFINETIDE
     Indication: Rett syndrome
     Dosage: ROUTE: GASTROENTERAL ROUTE
     Route: 065
     Dates: start: 20230627, end: 202308
  3. DAYBUE [Suspect]
     Active Substance: TROFINETIDE
     Dosage: ROUTE: GASTROENTERAL ROUTE
     Route: 065
  4. DAYBUE [Suspect]
     Active Substance: TROFINETIDE
     Dosage: ROUTE: GASTROENTERAL ROUTE
     Route: 065
  5. DAYBUE [Suspect]
     Active Substance: TROFINETIDE
     Dosage: ROUTE: GASTROENTERAL ROUTE
     Route: 065
  6. DAYBUE [Suspect]
     Active Substance: TROFINETIDE
     Dosage: ROUTE: GASTROENTERAL ROUTE
     Route: 065
     Dates: start: 20230902
  7. DAYBUE [Suspect]
     Active Substance: TROFINETIDE
     Dosage: ROUTE: GASTROENTERAL ROUTE
     Route: 065
     Dates: end: 20231002
  8. DAYBUE [Suspect]
     Active Substance: TROFINETIDE
     Route: 065
     Dates: end: 20231004
  9. DAYBUE [Suspect]
     Active Substance: TROFINETIDE
     Route: 065
     Dates: start: 20231122
  10. DAYBUE [Suspect]
     Active Substance: TROFINETIDE
     Route: 065
     Dates: start: 20231128
  11. DAYBUE [Suspect]
     Active Substance: TROFINETIDE
     Dosage: ROUTE: GASTROENTERAL USE
     Route: 065
     Dates: start: 20231219
  12. DAYBUE [Suspect]
     Active Substance: TROFINETIDE
     Dosage: ROUTE: GASTROENTERAL USE
     Route: 065
     Dates: end: 20240306
  13. DAYBUE [Suspect]
     Active Substance: TROFINETIDE
     Dosage: ROUTE: GASTROENTERAL USE
     Route: 065
  14. CALCIUM [Concomitant]
     Active Substance: CALCIUM
     Indication: Product used for unknown indication
     Route: 065
  15. CLONAZEPAM [Concomitant]
     Active Substance: CLONAZEPAM
     Indication: Product used for unknown indication
     Route: 065
  16. CYPROHEPTADINE [Concomitant]
     Active Substance: CYPROHEPTADINE
     Indication: Product used for unknown indication
     Route: 065
  17. DEPAKOTE [Concomitant]
     Active Substance: DIVALPROEX SODIUM
     Indication: Product used for unknown indication
     Route: 065
  18. LEVOCARNITINE [Concomitant]
     Active Substance: LEVOCARNITINE
     Indication: Product used for unknown indication
     Route: 065
  19. GAS RELIEF [Concomitant]
     Active Substance: DIMETHICONE
     Indication: Product used for unknown indication
     Route: 065
  20. MOTEGRITY [Concomitant]
     Active Substance: PRUCALOPRIDE SUCCINATE
     Indication: Product used for unknown indication
     Route: 065
  21. BOTOX [Concomitant]
     Active Substance: ONABOTULINUMTOXINA
     Indication: Product used for unknown indication
     Route: 065
  22. PHENOL [Concomitant]
     Active Substance: PHENOL
     Indication: Product used for unknown indication
     Route: 065
  23. KEPPRA [Concomitant]
     Active Substance: LEVETIRACETAM
     Indication: Product used for unknown indication
     Route: 065
  24. VITAMIN D3 [Concomitant]
     Active Substance: CHOLECALCIFEROL
     Indication: Product used for unknown indication
     Route: 065
  25. LEVOTHYROXINE [Concomitant]
     Active Substance: LEVOTHYROXINE\LEVOTHYROXINE SODIUM
     Indication: Product used for unknown indication
     Route: 065
  26. MIRALAX [Concomitant]
     Active Substance: POLYETHYLENE GLYCOL 3350
     Indication: Product used for unknown indication
     Route: 065

REACTIONS (1)
  - Ileus [Not Recovered/Not Resolved]

NARRATIVE: CASE EVENT DATE: 20240401
